FAERS Safety Report 6701810-8 (Version None)
Quarter: 2010Q2

REPORT INFORMATION
  Report Type: 
  Country: None (occurrence: None)
  Receive Date: 20100429
  Receipt Date: 20100420
  Transmission Date: 20101027
  Serious: Yes (Other)
  Sender: FDA-Public Use
  Company Number: CA-ASTRAZENECA-2010SE17560

PATIENT
  Sex: Male
  Weight: 77.1 kg

DRUGS (1)
  1. MERREM [Suspect]
     Route: 042

REACTIONS (1)
  - ACCIDENTAL OVERDOSE [None]
